FAERS Safety Report 25414535 (Version 2)
Quarter: 2025Q2

REPORT INFORMATION
  Report Type: Spontaneous
  Country: US (occurrence: US)
  Receive Date: 20250609
  Receipt Date: 20250611
  Transmission Date: 20250717
  Serious: No
  Sender: SANOFI AVENTIS
  Company Number: US-SA-2025SA162232

PATIENT
  Age: 16 Year
  Sex: Male

DRUGS (6)
  1. ALPROLIX [Suspect]
     Active Substance: EFTRENONACOG ALFA
     Indication: Factor IX deficiency
     Dosage: 6300 U, QW
     Route: 042
     Dates: start: 201910
  2. ALPROLIX [Suspect]
     Active Substance: EFTRENONACOG ALFA
     Indication: Factor IX deficiency
     Dosage: 6300 U, QW
     Route: 042
     Dates: start: 201910
  3. ALPROLIX [Suspect]
     Active Substance: EFTRENONACOG ALFA
     Route: 042
     Dates: start: 201910
  4. ALPROLIX [Suspect]
     Active Substance: EFTRENONACOG ALFA
     Route: 042
     Dates: start: 201910
  5. HEPARIN [Concomitant]
     Active Substance: HEPARIN SODIUM
  6. SODIUM CHLORIDE [Concomitant]
     Active Substance: SODIUM CHLORIDE

REACTIONS (2)
  - Haemorrhage [Recovered/Resolved]
  - Haemorrhage [Recovered/Resolved]

NARRATIVE: CASE EVENT DATE: 20250530
